FAERS Safety Report 8556160-4 (Version None)
Quarter: 2012Q3

REPORT INFORMATION
  Report Type: 
  Country: None (occurrence: None)
  Receive Date: 20120801
  Receipt Date: 20120720
  Transmission Date: 20120928
  Serious: No
  Sender: FDA-Public Use
  Company Number: US-B.I. PHARMACEUTICALS,INC./RIDGEFIELD-2012-BP-16248BP

PATIENT
  Sex: Female

DRUGS (4)
  1. ALBUTEROL [Concomitant]
     Indication: EMPHYSEMA
     Route: 055
     Dates: start: 20070101
  2. ALBUTEROL [Concomitant]
     Indication: ASTHMA
  3. SPIRIVA [Suspect]
     Indication: EMPHYSEMA
     Dosage: 18 MCG
     Route: 055
     Dates: start: 20070101
  4. SPIRIVA [Suspect]
     Indication: ASTHMA
     Route: 048
     Dates: start: 20120720, end: 20120720

REACTIONS (1)
  - INCORRECT ROUTE OF DRUG ADMINISTRATION [None]
